FAERS Safety Report 6288349-1 (Version None)
Quarter: 2009Q3

REPORT INFORMATION
  Report Type: 
  Country: None (occurrence: None)
  Receive Date: 20090729
  Receipt Date: 20090723
  Transmission Date: 20100115
  Serious: Yes (Other)
  Sender: FDA-Public Use
  Company Number: PHHY2009DE28880

PATIENT
  Sex: Female
  Weight: 89 kg

DRUGS (5)
  1. RASILEZ [Suspect]
     Indication: HYPERTENSION
     Dosage: 300 MG PER DAY
     Route: 048
     Dates: start: 20090602, end: 20090709
  2. NEBIVOLOL [Concomitant]
     Indication: HYPERTENSION
     Dosage: 5 MG, UNK
     Route: 048
  3. PRETERAX [Concomitant]
     Indication: HYPERTENSION
     Dosage: 1.5/0.625 MG
     Route: 048
  4. METFORMIN [Concomitant]
     Indication: DIABETES MELLITUS
     Dosage: 1 DF, BID
     Route: 048
  5. AMLODIPINE [Concomitant]
     Indication: HYPERTENSION
     Dosage: 1 DF, BID
     Route: 048

REACTIONS (2)
  - ATRIAL FIBRILLATION [None]
  - EXTRASYSTOLES [None]
